FAERS Safety Report 17251855 (Version 3)
Quarter: 2020Q1

REPORT INFORMATION
  Report Type: Spontaneous
  Country: FR (occurrence: FR)
  Receive Date: 20200109
  Receipt Date: 20200303
  Transmission Date: 20200409
  Serious: Yes (Hospitalization, Other)
  Sender: FDA-Public Use
  Company Number: FR-MYLANLABS-2020M1001635

PATIENT
  Age: 76 Year
  Sex: Female
  Weight: 49 kg

DRUGS (32)
  1. XEROQUEL [Concomitant]
     Active Substance: QUETIAPINE FUMARATE
     Indication: PRODUCT USED FOR UNKNOWN INDICATION
     Dosage: 50 MILLIGRAM, 3 TABLET AT 6 PM
     Route: 065
     Dates: start: 20181217
  2. TRANSIPEG                          /00754501/ [Concomitant]
     Active Substance: POLYETHYLENE GLYCOL 3350
     Indication: CONSTIPATION
     Dosage: 5.9 GRAM, 2 SACHETS AT 8 AM
     Route: 065
     Dates: start: 20161001, end: 20170924
  3. ELIQUIS [Suspect]
     Active Substance: APIXABAN
     Dosage: 5 MG, 1 TABLET AT 8 AM AND AT 6 PM
     Dates: start: 20190906
  4. TEMESTA                            /00273201/ [Concomitant]
     Active Substance: LORAZEPAM
     Dosage: 2.5 MILLIGRAM, 0.5 TABLET AT 8 AM AND 12 PM AND 1 TABLET AT 8 PM
     Route: 048
     Dates: start: 20191219
  5. DOLIPRANE [Concomitant]
     Active Substance: ACETAMINOPHEN
     Dosage: 500 MILLIGRAM, 2 CAPSULES AT 8 AM, 12 PM AND 6 PM IF NEEDED
     Route: 065
     Dates: start: 20190211, end: 20190324
  6. LOXEN L P [Concomitant]
     Active Substance: NICARDIPINE HYDROCHLORIDE
     Indication: PRODUCT USED FOR UNKNOWN INDICATION
     Dosage: 50 MILLIGRAM, 1 CAPSULE AT 8 AM AND 6 PM
     Route: 065
     Dates: start: 20161010, end: 20181231
  7. LIPANTHYL [Suspect]
     Active Substance: FENOFIBRATE
     Indication: PSYCHOTIC DISORDER
     Dosage: 145 MILLIGRAM, 1 TABLET AT 6 PM
     Route: 048
     Dates: start: 20181219
  8. CARBOCYSTEINE [Concomitant]
     Active Substance: CARBOCYSTEINE
     Indication: PRODUCT USED FOR UNKNOWN INDICATION
     Dosage: 200 MILLILITER, 1 TABLE SPOON AT 8 AM, 12 PM AND 6 PM
     Route: 065
     Dates: start: 20180412, end: 20180422
  9. PIVALONE                           /00803802/ [Concomitant]
     Active Substance: TIXOCORTOL PIVALATE
     Indication: PRODUCT USED FOR UNKNOWN INDICATION
     Dosage: UNK, 2 SPRAYS AT 8 AM, 12 PM AND AT 6 PM
     Route: 045
     Dates: start: 20180315, end: 20180320
  10. ARIPIPRAZOLE. [Suspect]
     Active Substance: ARIPIPRAZOLE
     Indication: PSYCHOTIC DISORDER
     Dosage: 10 MILLIGRAM, QD
     Route: 048
     Dates: start: 20161001
  11. TEMESTA                            /00273201/ [Concomitant]
     Active Substance: LORAZEPAM
     Indication: PRODUCT USED FOR UNKNOWN INDICATION
     Dosage: 2.5 MILLIGRAM, 0.5 TABLET AT 8 AM AND 12 PM AND 1.5 TABLET AT 8 PM
     Route: 048
     Dates: start: 20170710, end: 20181218
  12. DOLIPRANE [Concomitant]
     Active Substance: ACETAMINOPHEN
     Dosage: 500 MILLIGRAM, 2 CAPSULES AT 8 AM, 12 PM AND 6 PM
     Route: 065
     Dates: start: 20170308, end: 20171220
  13. IMOVANE [Concomitant]
     Active Substance: ZOPICLONE
     Indication: PRODUCT USED FOR UNKNOWN INDICATION
     Dosage: 7.5 MILLIGRAM, 1 TABLET AT 8 PM
     Route: 065
     Dates: start: 20161001
  14. ANTICERUMEN [Concomitant]
     Indication: PRODUCT USED FOR UNKNOWN INDICATION
     Dosage: 2 MILLILITER, 1 DROP AT 8 AM AND 6 PM
     Route: 001
     Dates: start: 20190207, end: 20190213
  15. ELIQUIS [Suspect]
     Active Substance: APIXABAN
     Dosage: 5 MG, 2 TABLET AT 8 AM AND AT 6 PM
     Route: 065
     Dates: start: 20190830, end: 20190905
  16. SEROPLEX [Concomitant]
     Active Substance: ESCITALOPRAM OXALATE
     Indication: PRODUCT USED FOR UNKNOWN INDICATION
     Dosage: 10 MILLIGRAM, 1 TABLET AT 8 AM
     Route: 065
     Dates: start: 20181217
  17. DOLIPRANE [Concomitant]
     Active Substance: ACETAMINOPHEN
     Dosage: 500 MILLIGRAM, 2 CAPSULES AT 8 AM, 8 AM AND 6 PM
     Route: 065
     Dates: start: 20190325
  18. ABILIFY [Concomitant]
     Active Substance: ARIPIPRAZOLE
     Indication: PRODUCT USED FOR UNKNOWN INDICATION
     Dosage: 5 MILLIGRAM, 2 TABLETS AT 8 AM
     Route: 065
     Dates: start: 20171106, end: 20181216
  19. ABILIFY [Concomitant]
     Active Substance: ARIPIPRAZOLE
     Dosage: 10 MILLIGRAM, 2 ORODISPERSIBLE TABLET AT 8 AM
     Route: 065
     Dates: start: 20111001, end: 20171105
  20. MUCOMYST [Concomitant]
     Active Substance: ACETYLCYSTEINE
     Indication: PRODUCT USED FOR UNKNOWN INDICATION
     Dosage: 200 MILLIGRAM, 1 SACHET AT 8 AM, 12 PM AND 6 PM
     Route: 048
     Dates: start: 20171113, end: 20171116
  21. ELIQUIS [Suspect]
     Active Substance: APIXABAN
     Indication: VENOUS THROMBOSIS
     Dosage: 10 MILLIGRAM, QD
     Route: 048
     Dates: start: 20170927, end: 20190829
  22. ZYPREXA [Concomitant]
     Active Substance: OLANZAPINE
     Indication: PRODUCT USED FOR UNKNOWN INDICATION
     Dosage: 7.5 MILLIGRAM, 2 TABLETS AT 6 PM
     Route: 060
     Dates: start: 20170821, end: 20181130
  23. DUPHALAC [Concomitant]
     Active Substance: LACTULOSE
     Indication: CONSTIPATION
     Dosage: 10 GRAM, 2 SACHETS AT 8 AM
     Route: 065
     Dates: start: 20170925
  24. PRETERAX                           /06377001/ [Concomitant]
     Active Substance: INDAPAMIDE\PERINDOPRIL
     Indication: PRODUCT USED FOR UNKNOWN INDICATION
     Dosage: 2 MG/0.625 MG, 1 TABLET AT 8 AM
     Dates: start: 20161001
  25. DOLIPRANE [Concomitant]
     Active Substance: ACETAMINOPHEN
     Dosage: 500 MILLIGRAM, 2 CAPSULES AT 8 AM, 12 PM AND 6 PM
     Route: 065
     Dates: start: 20171221, end: 20171231
  26. PANSORAL [Concomitant]
     Active Substance: CETALKONIUM CHLORIDE\CHOLINE SALICYLATE
     Indication: PRODUCT USED FOR UNKNOWN INDICATION
     Dosage: 15 GRAM MOUTH GEL, 1 APPLICATION AT 8 AM, 12 PM AND 6 PM
     Route: 065
     Dates: start: 20171221, end: 20171231
  27. ABILIFY [Concomitant]
     Active Substance: ARIPIPRAZOLE
     Dosage: 5 MILLIGRAM, 1 TABLET AT 8 AM
     Route: 065
     Dates: start: 20161001, end: 20171105
  28. ABILIFY [Concomitant]
     Active Substance: ARIPIPRAZOLE
     Dosage: 5 MILLIGRAM, 1 TABLET AT 8 AM
     Route: 065
     Dates: start: 20181217
  29. OLANZAPINE. [Suspect]
     Active Substance: OLANZAPINE
     Indication: PSYCHOTIC DISORDER
     Dosage: 15 MILLIGRAM, QD
     Route: 048
     Dates: start: 20170821
  30. ZYPREXA [Concomitant]
     Active Substance: OLANZAPINE
     Dosage: 7.5 MILLIGRAM, 1 TABLET AT 8 AM AND 6 PM
     Route: 065
     Dates: start: 20181217
  31. AVLOCARDYL                         /00030002/ [Concomitant]
     Active Substance: PROPRANOLOL HYDROCHLORIDE
     Indication: PRODUCT USED FOR UNKNOWN INDICATION
     Dosage: 40 MILLIGRAM, 1 TABLET AT 8 AM
     Route: 065
     Dates: start: 20161001
  32. FOSAVANCE [Concomitant]
     Active Substance: ALENDRONATE SODIUM\CHOLECALCIFEROL
     Indication: PRODUCT USED FOR UNKNOWN INDICATION
     Dosage: 70 MG/5600 IU, 1 CAPSULE AT 8 AM
     Route: 065
     Dates: start: 20161001

REACTIONS (7)
  - Endometrial adenocarcinoma [Unknown]
  - Therapeutic product effect decreased [Recovering/Resolving]
  - Uterine cancer [Unknown]
  - Deep vein thrombosis [Recovering/Resolving]
  - Thrombophlebitis [Unknown]
  - Venous thrombosis [Recovering/Resolving]
  - Prescribed underdose [Unknown]

NARRATIVE: CASE EVENT DATE: 2018
